FAERS Safety Report 6105425-4 (Version None)
Quarter: 2009Q1

REPORT INFORMATION
  Report Type: 
  Country: None (occurrence: None)
  Receive Date: 20090306
  Receipt Date: 20090126
  Transmission Date: 20090719
  Serious: Yes (Other)
  Sender: FDA-Public Use
  Company Number: FR-PFIZER INC-2008155372

PATIENT

DRUGS (1)
  1. XALATAN [Suspect]

REACTIONS (2)
  - RESPIRATORY DISORDER [None]
  - RETINAL OPERATION [None]
